FAERS Safety Report 12081548 (Version 2)
Quarter: 2016Q2

REPORT INFORMATION
  Report Type: Report from Study
  Country: DE (occurrence: NL)
  Receive Date: 20160216
  Receipt Date: 20160406
  Transmission Date: 20160815
  Serious: Yes (Death, Hospitalization, Other)
  Sender: FDA-Public Use
  Company Number: DE-ACTELION-A-US2015-117934

PATIENT
  Age: 66 Year
  Sex: Female

DRUGS (2)
  1. VENTAVIS [Suspect]
     Active Substance: ILOPROST
     Indication: PULMONARY ARTERIAL HYPERTENSION
     Dosage: 5 MCG, 6XDAILY
     Route: 055
     Dates: start: 20140512
  2. VENTAVIS [Suspect]
     Active Substance: ILOPROST
     Dosage: 30 MCG/24HR, ADMINISTERED AS 6X5
     Route: 055

REACTIONS (7)
  - Cardiac failure [Fatal]
  - Arrhythmia [Not Recovered/Not Resolved]
  - Blood glucose abnormal [Unknown]
  - Tachycardia [Not Recovered/Not Resolved]
  - Dizziness [Unknown]
  - Erythema [Unknown]
  - Pain in extremity [Unknown]

NARRATIVE: CASE EVENT DATE: 20150309
